FAERS Safety Report 7500666-3 (Version None)
Quarter: 2011Q2

REPORT INFORMATION
  Report Type: 
  Country: None (occurrence: None)
  Receive Date: 20110524
  Receipt Date: 20110518
  Transmission Date: 20111010
  Serious: Yes (Hospitalization, Other)
  Sender: FDA-Public Use
  Company Number: US-MERCK-1103USA02684

PATIENT
  Age: 65 Year
  Sex: Female
  Weight: 51 kg

DRUGS (17)
  1. FOSAMAX [Suspect]
     Route: 048
     Dates: start: 20080201
  2. ACTONEL [Suspect]
     Indication: OSTEOPENIA
     Route: 065
     Dates: start: 20090101
  3. INDERAL [Concomitant]
     Indication: VENTRICULAR EXTRASYSTOLES
     Route: 065
     Dates: start: 20020101
  4. ALENDRONATE SODIUM [Suspect]
     Indication: OSTEOPENIA
     Route: 048
     Dates: start: 20081101, end: 20090216
  5. ZYRTEC [Concomitant]
     Indication: RHINITIS ALLERGIC
     Route: 065
  6. SYNTHROID [Concomitant]
     Route: 065
  7. ZYRTEC [Concomitant]
     Indication: CHRONIC SINUSITIS
     Route: 065
  8. K-DUR [Concomitant]
     Route: 065
  9. ACTOS [Concomitant]
     Route: 065
  10. ARIXTRA [Concomitant]
     Route: 058
     Dates: start: 20090201, end: 20090201
  11. FOSAMAX [Suspect]
     Route: 048
     Dates: start: 20080201
  12. OS-CAL [Concomitant]
     Route: 065
     Dates: start: 20020101, end: 20090101
  13. METFORMIN [Concomitant]
     Indication: TYPE 2 DIABETES MELLITUS
     Route: 065
  14. FOSAMAX [Suspect]
     Indication: OSTEOPOROSIS
     Route: 048
     Dates: start: 20021101
  15. FOSAMAX [Suspect]
     Indication: OSTEOPENIA
     Route: 048
     Dates: start: 20021101
  16. VITAMIN D (UNSPECIFIED) [Concomitant]
     Route: 065
     Dates: start: 20020101, end: 20090101
  17. CELEBREX [Concomitant]
     Route: 065

REACTIONS (17)
  - FALL [None]
  - CATARACT [None]
  - BLOOD UREA INCREASED [None]
  - HYPERTENSION [None]
  - PAIN [None]
  - ARTHROPOD BITE [None]
  - ABDOMINAL TENDERNESS [None]
  - LOW TURNOVER OSTEOPATHY [None]
  - TENDON DISORDER [None]
  - HYPOAESTHESIA [None]
  - FEMUR FRACTURE [None]
  - PARAESTHESIA [None]
  - MULTIPLE MYELOMA [None]
  - SPINAL COLUMN STENOSIS [None]
  - OSTEOARTHRITIS [None]
  - DYSPNOEA [None]
  - SINUS DISORDER [None]
